FAERS Safety Report 4433500-9 (Version None)
Quarter: 2004Q3

REPORT INFORMATION
  Report Type: 
  Country: None (occurrence: None)
  Receive Date: 20040824
  Receipt Date: 20040813
  Transmission Date: 20050211
  Serious: No
  Sender: FDA-Public Use
  Company Number: 2004GB01793

PATIENT
  Age: 35 Year
  Sex: Female

DRUGS (4)
  1. SEROQUEL [Suspect]
     Indication: SCHIZOPHRENIA
     Dosage: STARTED ON A LOWER DOSE
     Dates: start: 20021201
  2. SEROQUEL [Suspect]
     Indication: SCHIZOPHRENIA
     Dosage: 150 MG BID PO
     Route: 048
     Dates: start: 20030401
  3. CIPRAMOL [Concomitant]
  4. IRON [Concomitant]

REACTIONS (1)
  - AUTOIMMUNE THYROIDITIS [None]
